FAERS Safety Report 7093126-8 (Version None)
Quarter: 2010Q4

REPORT INFORMATION
  Report Type: 
  Country: None (occurrence: None)
  Receive Date: 20101018
  Receipt Date: 20100429
  Transmission Date: 20110411
  Serious: Yes (Other)
  Sender: FDA-Public Use
  Company Number: HQWYE214703JUN05

PATIENT
  Age: 61 Year
  Sex: Female
  Weight: 74.91 kg

DRUGS (3)
  1. PREMARIN [Suspect]
  2. CYCRIN [Suspect]
  3. PROVERA [Suspect]

REACTIONS (2)
  - BREAST CANCER [None]
  - BREAST CANCER IN SITU [None]
